FAERS Safety Report 25255002 (Version 2)
Quarter: 2025Q2

REPORT INFORMATION
  Report Type: Spontaneous
  Country: DE (occurrence: DE)
  Receive Date: 20250430
  Receipt Date: 20250610
  Transmission Date: 20250717
  Serious: Yes (Hospitalization)
  Sender: MERCK SHARP & DOHME LLC
  Company Number: DE-PFIZER INC-202500066875

PATIENT
  Age: 58 Year
  Sex: Male
  Weight: 125 kg

DRUGS (9)
  1. PEMBROLIZUMAB [Suspect]
     Active Substance: PEMBROLIZUMAB
     Indication: Metastases to lung
     Dosage: UNK UNK, 2X/DAY, 1-1
     Route: 048
     Dates: start: 2024
  2. INLYTA [Suspect]
     Active Substance: AXITINIB
     Indication: Metastases to lung
     Dosage: 5 MG, 2X/DAY, 1-0-1-0
     Route: 048
     Dates: end: 20250409
  3. JARDIANCE [Concomitant]
     Active Substance: EMPAGLIFLOZIN
     Dosage: 1 DF, 1X/DAY, 1-0-0-0
  4. OZEMPIC [Concomitant]
     Active Substance: SEMAGLUTIDE
     Dosage: 1 DF, WEEKLY, 1.8 IU
  5. Sitagliptin/Metformin ratiopharm [Concomitant]
     Dosage: 1 DF, 2X/DAY, 1-0-1-0
  6. TORASEMIDE-1A PHARMA [Concomitant]
     Dosage: 1 DF, 1X/DAY, 1-0-0-0
  7. SPIRONOLACTONE [Concomitant]
     Active Substance: SPIRONOLACTONE
     Dosage: 1 DF, 1X/DAY, 1-0-0-0
  8. BISOPROLOL FUMARATE [Concomitant]
     Active Substance: BISOPROLOL FUMARATE
     Dosage: 2.5 MG, 1X/DAY, 1-0-0-0
  9. ENTRESTO [Concomitant]
     Active Substance: SACUBITRIL\VALSARTAN
     Dosage: 2 DF, 2X/DAY, 1-0-1-0

REACTIONS (7)
  - Ejection fraction decreased [Recovered/Resolved]
  - Blister [Unknown]
  - Genital infection fungal [Unknown]
  - Off label use [Unknown]
  - Chest pain [Not Recovered/Not Resolved]
  - Impaired healing [Unknown]
  - Hyperaesthesia [Unknown]

NARRATIVE: CASE EVENT DATE: 20250101
